FAERS Safety Report 8056570-8 (Version None)
Quarter: 2012Q1

REPORT INFORMATION
  Report Type: 
  Country: None (occurrence: None)
  Receive Date: 20120119
  Receipt Date: 20080728
  Transmission Date: 20120608
  Serious: Yes (Life-Threatening, Hospitalization)
  Sender: FDA-Public Use
  Company Number: GXKR2008GB07061

PATIENT
  Age: 55 Year
  Sex: Male

DRUGS (7)
  1. DICLOFENAC [Suspect]
  2. LANSOPRAZOLE [Suspect]
  3. NOVORAPID [Suspect]
  4. ROSUVASTATIN [Suspect]
  5. DIAZEPAM [Suspect]
  6. LEVEMIR [Suspect]
  7. RAMIPRIL [Suspect]

REACTIONS (17)
  - NIKOLSKY'S SIGN [None]
  - SEPSIS [None]
  - GENERAL PHYSICAL HEALTH DETERIORATION [None]
  - NEUROPATHIC ULCER [None]
  - RASH MACULAR [None]
  - ORAL MUCOSAL ERUPTION [None]
  - CONJUNCTIVITIS [None]
  - HERPES ZOSTER [None]
  - BLISTER [None]
  - BIOPSY [None]
  - LEUKOCYTOSIS [None]
  - RENAL IMPAIRMENT [None]
  - RASH ERYTHEMATOUS [None]
  - RASH VESICULAR [None]
  - SCAB [None]
  - TOXIC EPIDERMAL NECROLYSIS [None]
  - SKIN EXFOLIATION [None]
